FAERS Safety Report 15555499 (Version 2)
Quarter: 2018Q4

REPORT INFORMATION
  Report Type: Spontaneous
  Country: AR (occurrence: AR)
  Receive Date: 20181026
  Receipt Date: 20181102
  Transmission Date: 20190205
  Serious: Yes (Hospitalization, Other)
  Sender: FDA-Public Use
  Company Number: AR-AMGEN-ARGSP2018148362

PATIENT
  Age: 51 Year
  Sex: Male
  Weight: 110 kg

DRUGS (1)
  1. NPLATE [Suspect]
     Active Substance: ROMIPLOSTIM
     Indication: IMMUNE THROMBOCYTOPENIC PURPURA
     Dosage: 1000 MUG, QWK
     Route: 058
     Dates: start: 2017

REACTIONS (1)
  - Peripheral artery thrombosis [Unknown]

NARRATIVE: CASE EVENT DATE: 20181017
